FAERS Safety Report 4480241-8 (Version None)
Quarter: 2004Q4

REPORT INFORMATION
  Report Type: 
  Country: None (occurrence: None)
  Receive Date: 20041020
  Receipt Date: 20041012
  Transmission Date: 20050328
  Serious: Yes (Life-Threatening, Disabling)
  Sender: FDA-Public Use
  Company Number: US-MERCK-0410USA01786

PATIENT
  Age: 37 Year
  Sex: Female

DRUGS (6)
  1. VIOXX [Suspect]
     Indication: INFLAMMATION
     Route: 048
     Dates: start: 19990101, end: 20041001
  2. HYDRODIURIL [Concomitant]
     Indication: HYPERTENSION
     Route: 048
  3. METHADONE HYDROCHLORIDE [Concomitant]
     Route: 065
  4. ALBUTEROL [Concomitant]
     Route: 065
  5. NEURONTIN [Concomitant]
     Route: 065
  6. PRILOSEC [Concomitant]
     Route: 065

REACTIONS (3)
  - ARTHROPATHY [None]
  - CHEST DISCOMFORT [None]
  - PAIN IN EXTREMITY [None]
